FAERS Safety Report 7608469-6 (Version None)
Quarter: 2011Q3

REPORT INFORMATION
  Report Type: 
  Country: None (occurrence: None)
  Receive Date: 20110714
  Receipt Date: 20110705
  Transmission Date: 20111222
  Serious: Yes (Hospitalization, Other)
  Sender: FDA-Public Use
  Company Number: US-BAYER-201033271NA

PATIENT
  Age: 29 Year
  Sex: Female
  Weight: 108.84 kg

DRUGS (18)
  1. NORGESTIMATE AND ETHINYL ESTRADIOL [Concomitant]
     Dosage: UNK
  2. AZITHROMYCIN [Concomitant]
     Dosage: 250 MG, UNK
     Dates: start: 20080529
  3. LEVAQUIN [Concomitant]
     Dosage: 750 MG, UNK
     Dates: start: 20080624
  4. HYDROCODONE [Concomitant]
     Dosage: UNK UNK, PRN
  5. PERCOCET [Concomitant]
     Indication: ANALGESIC THERAPY
     Dosage: UNK
     Dates: start: 20080801, end: 20080815
  6. TYLENOL-500 [Concomitant]
     Indication: ANALGESIC THERAPY
     Dosage: 325 MG, UNK
     Dates: start: 20080810, end: 20080820
  7. YASMIN [Suspect]
     Indication: ORAL CONTRACEPTION
     Route: 048
     Dates: start: 20071011, end: 20080820
  8. AMOXICILLIN AND CLAVULANATE POTASSIUM [Concomitant]
     Dosage: UNK
     Dates: start: 20080528
  9. ZYRTEC [Concomitant]
     Dosage: UNK UNK, PRN
  10. NAPROXEN [Concomitant]
     Indication: ANALGESIC THERAPY
     Dosage: UNK UNK, PRN
  11. SERTRALINE [Concomitant]
     Dosage: 50 MG, UNK
     Dates: start: 20080528, end: 20080731
  12. TOPAMAX [Concomitant]
     Dosage: 50 MG, HS
     Route: 048
     Dates: start: 20080715
  13. DROSPIRENONE AND ETHINYL ESTRADIOL [Suspect]
     Indication: ORAL CONTRACEPTION
     Route: 048
     Dates: start: 20071011, end: 20080820
  14. IBUPROFEN [Concomitant]
     Indication: ANALGESIC THERAPY
     Dosage: UNK UNK, PRN
  15. IBUPROFEN (ADVIL) [Concomitant]
     Indication: ANALGESIC THERAPY
     Dosage: UNK UNK, PRN
  16. OXYCODONE/ACET [Concomitant]
     Dosage: UNK
     Dates: start: 20080804, end: 20080814
  17. OXYCODONE HCL [Concomitant]
     Dosage: UNK UNK, PRN
  18. ZOLOFT [Concomitant]
     Dosage: 10 MG, HS
     Route: 048

REACTIONS (2)
  - GALLBLADDER INJURY [None]
  - PULMONARY EMBOLISM [None]
